FAERS Safety Report 16137617 (Version 2)
Quarter: 2019Q2

REPORT INFORMATION
  Report Type: Spontaneous
  Country: US (occurrence: US)
  Receive Date: 20190330
  Receipt Date: 20190409
  Transmission Date: 20190711
  Serious: Yes (Death)
  Sender: FDA-Public Use
  Company Number: US-ROCHE-2292610

PATIENT
  Sex: Male

DRUGS (9)
  1. EXELON [Concomitant]
     Active Substance: RIVASTIGMINE TARTRATE
  2. NORVASC [Concomitant]
     Active Substance: AMLODIPINE BESYLATE
  3. CRESTOR [Concomitant]
     Active Substance: ROSUVASTATIN CALCIUM
  4. ERIVEDGE [Suspect]
     Active Substance: VISMODEGIB
     Indication: BASAL CELL CARCINOMA
     Route: 048
     Dates: start: 20181227
  5. INDAPAMIDE. [Concomitant]
     Active Substance: INDAPAMIDE
  6. ALLOPURINOL. [Concomitant]
     Active Substance: ALLOPURINOL
  7. NAMENDA [Concomitant]
     Active Substance: MEMANTINE HYDROCHLORIDE
  8. COREG [Concomitant]
     Active Substance: CARVEDILOL
  9. FLOMAX [Concomitant]
     Active Substance: TAMSULOSIN HYDROCHLORIDE

REACTIONS (1)
  - Death [Fatal]
